FAERS Safety Report 6271353-7 (Version None)
Quarter: 2009Q3

REPORT INFORMATION
  Report Type: 
  Country: None (occurrence: None)
  Receive Date: 20090717
  Receipt Date: 20071227
  Transmission Date: 20100115
  Serious: Yes (Hospitalization, Other)
  Sender: FDA-Public Use
  Company Number: US-ASTRAZENECA-2007UW15904

PATIENT
  Age: 43 Year
  Sex: Female
  Weight: 78.5 kg

DRUGS (10)
  1. SEROQUEL [Suspect]
     Indication: DEPRESSION
     Route: 048
     Dates: start: 20031101, end: 20060101
  2. SEROQUEL [Suspect]
     Dosage: 100 - 400 MG
     Route: 048
     Dates: start: 20040109
  3. HALDOL [Concomitant]
     Dates: start: 19940101
  4. RISPERDAL [Concomitant]
     Dates: start: 20030101
  5. ZYPREXA [Concomitant]
     Dates: start: 20030101
  6. DEPAKOTE [Concomitant]
     Dosage: 250 - 1500 MG
     Route: 048
     Dates: start: 19970424
  7. MIRTAZAPINE [Concomitant]
     Dates: start: 20040107
  8. GABAPENTIN [Concomitant]
     Dates: start: 20040106
  9. ZOLPIDEM [Concomitant]
     Dates: start: 20040105
  10. TRAZODONE [Concomitant]
     Dates: start: 20040106

REACTIONS (6)
  - DIABETES MELLITUS [None]
  - DIABETES MELLITUS INADEQUATE CONTROL [None]
  - HYPERGLYCAEMIA [None]
  - HYPOGLYCAEMIA [None]
  - NEUROPATHY PERIPHERAL [None]
  - TYPE 1 DIABETES MELLITUS [None]
